FAERS Safety Report 4516863-5 (Version None)
Quarter: 2004Q4

REPORT INFORMATION
  Report Type: 
  Country: None (occurrence: None)
  Receive Date: 20041202
  Receipt Date: 20041115
  Transmission Date: 20050328
  Serious: Yes (Other)
  Sender: FDA-Public Use
  Company Number: DE-GLAXOSMITHKLINE-D0045220A

PATIENT
  Age: 70 Year
  Sex: Male

DRUGS (8)
  1. LEUKERAN [Suspect]
     Dosage: 2MG UNKNOWN
     Route: 048
     Dates: start: 20040702
  2. VINCRISTINE [Concomitant]
     Dosage: 1MG SINGLE DOSE
     Route: 065
     Dates: start: 20040316, end: 20040316
  3. CYCLOPHOSPHAMIDE [Concomitant]
     Dosage: 900MG SINGLE DOSE
     Route: 065
     Dates: start: 20040316, end: 20040316
  4. CYCLOPHOSPHAMIDE [Concomitant]
     Dosage: 500MG PER DAY
     Route: 065
     Dates: start: 20040408, end: 20040412
  5. VENIMMUN [Concomitant]
     Dosage: 10MG EVERY TWO WEEKS
     Route: 042
     Dates: start: 20040506
  6. VINCRISTINE [Concomitant]
     Dosage: 1MG PER DAY
     Route: 065
     Dates: start: 20040408, end: 20040412
  7. VENIMMUN [Concomitant]
     Dosage: 60G SINGLE DOSE
     Route: 042
     Dates: start: 20040412, end: 20040412
  8. NEXIUM [Concomitant]
     Indication: PROPHYLAXIS
     Dosage: 20MG UNKNOWN
     Route: 048

REACTIONS (2)
  - GAIT DISTURBANCE [None]
  - THROMBOCYTOPENIA [None]
